FAERS Safety Report 23159826 (Version 1)
Quarter: 2023Q4

REPORT INFORMATION
  Report Type: Report from Study
  Country: JP (occurrence: JP)
  Receive Date: 20231108
  Receipt Date: 20231108
  Transmission Date: 20240109
  Serious: Yes (Hospitalization)
  Sender: FDA-Public Use
  Company Number: JP-002147023-NVSC2023JP192839

PATIENT

DRUGS (11)
  1. RUXOLITINIB [Suspect]
     Active Substance: RUXOLITINIB
     Indication: Myelofibrosis
     Dosage: 5 MG, BID
     Route: 048
     Dates: start: 20220208
  2. NAVITOCLAX [Suspect]
     Active Substance: NAVITOCLAX
     Indication: Myelofibrosis
     Dosage: 100 MG, QD
     Route: 048
     Dates: start: 20220208, end: 20230826
  3. ACYCLOVIR [Concomitant]
     Active Substance: ACYCLOVIR
     Indication: Infection prophylaxis
     Dosage: 200 MG, QD
     Route: 065
     Dates: start: 20220215
  4. BUDEFORT [Concomitant]
     Indication: Asthma
     Dosage: 60 DOSES, 3 PUFF, BID
     Route: 065
     Dates: start: 20211007
  5. SULFAMETHOXAZOLE\TRIMETHOPRIM [Concomitant]
     Active Substance: SULFAMETHOXAZOLE\TRIMETHOPRIM
     Indication: Prophylaxis
     Dosage: 2 DOSAGE FORM, Q2W
     Route: 065
     Dates: start: 20220215
  6. FEXOFENADINE HYDROCHLORIDE [Concomitant]
     Active Substance: FEXOFENADINE HYDROCHLORIDE
     Indication: Seasonal allergy
     Dosage: 60 MG, PRN
     Route: 065
     Dates: start: 2010
  7. KAMIKIHITO [ANGELICA ARCHANGELICA ROOT;ASTRAGALUS SPP. ROOT;ATRACTYLOD [Concomitant]
     Indication: Palpitations
     Dosage: 2.5 MG, PRN
     Route: 065
     Dates: start: 20211118
  8. MONTELUKAST SODIUM [Concomitant]
     Active Substance: MONTELUKAST SODIUM
     Indication: Asthma
     Dosage: 10 MG, QD
     Route: 065
     Dates: start: 20160916
  9. SPIRIVA [Concomitant]
     Active Substance: TIOTROPIUM BROMIDE MONOHYDRATE
     Indication: Asthma
     Dosage: 2.5 UG (60 PUFFS, 2 PUFF, EVERY 1 DAYS)
     Route: 065
     Dates: start: 20211007
  10. YAKUBAN [Concomitant]
     Active Substance: FLURBIPROFEN
     Indication: Musculoskeletal stiffness
     Dosage: 60 MG, PRN
     Route: 065
     Dates: start: 20171020
  11. SODIUM FERROUS CITRATE [Concomitant]
     Active Substance: SODIUM FERROUS CITRATE
     Indication: Anaemia
     Dosage: 50 MG, QD
     Route: 065
     Dates: start: 20230628

REACTIONS (2)
  - Lung abscess [Recovered/Resolved]
  - Pneumonia [Recovered/Resolved]

NARRATIVE: CASE EVENT DATE: 20230826
